FAERS Safety Report 14205707 (Version 2)
Quarter: 2017Q4

REPORT INFORMATION
  Report Type: Spontaneous
  Country: US (occurrence: US)
  Receive Date: 20171120
  Receipt Date: 20171122
  Transmission Date: 20180321
  Serious: No
  Sender: FDA-Public Use
  Company Number: US-ASTRAZENECA-2016SE92471

PATIENT
  Sex: Female

DRUGS (2)
  1. CRESTOR [Suspect]
     Active Substance: ROSUVASTATIN CALCIUM
     Route: 048
  2. CRESTOR [Suspect]
     Active Substance: ROSUVASTATIN CALCIUM
     Dosage: GENERIC CRESTOR
     Route: 065

REACTIONS (12)
  - Blood triglycerides increased [Unknown]
  - Hiatus hernia [Unknown]
  - Product substitution issue [Unknown]
  - Lactose intolerance [Unknown]
  - Dyspepsia [Unknown]
  - Abdominal discomfort [Unknown]
  - Blood cholesterol increased [Unknown]
  - Irritable bowel syndrome [Unknown]
  - Osteoporosis [Unknown]
  - Malaise [Unknown]
  - Ill-defined disorder [Unknown]
  - Drug intolerance [Unknown]
